FAERS Safety Report 5824209-5 (Version None)
Quarter: 2008Q3

REPORT INFORMATION
  Report Type: 
  Country: None (occurrence: None)
  Receive Date: 20080722
  Receipt Date: 20080714
  Transmission Date: 20090109
  Serious: Yes (Other)
  Sender: FDA-Public Use
  Company Number: 2008AL003779

PATIENT
  Age: 75 Year
  Sex: Male
  Weight: 68.0396 kg

DRUGS (20)
  1. DIGOXIN [Suspect]
     Dosage: 0.25MG DAILY PO
     Route: 048
  2. PREVACID [Concomitant]
  3. ACIDOPHILUS [Concomitant]
  4. ASPIRIN [Concomitant]
  5. GINGKO BILOBA [Concomitant]
  6. MULTI-VITAMIN [Concomitant]
  7. NAMENDA [Concomitant]
  8. NITROGLYCERIN [Concomitant]
  9. FISH OIL CAPSULES [Concomitant]
  10. WARFARIN SODIUM [Concomitant]
  11. ACTOS [Concomitant]
  12. LANOXIN [Concomitant]
  13. DETROL LA [Concomitant]
  14. TRAZODONE HCL [Concomitant]
  15. GLYPIDIZE [Concomitant]
  16. AVAPRO [Concomitant]
  17. ZOCOR [Concomitant]
  18. ARICEPT [Concomitant]
  19. GLIPIZIDE [Concomitant]
  20. SYSTONE [Concomitant]

REACTIONS (2)
  - PHARMACEUTICAL PRODUCT COMPLAINT [None]
  - SYNCOPE [None]
